FAERS Safety Report 24091117 (Version 1)
Quarter: 2024Q3

REPORT INFORMATION
  Report Type: Spontaneous
  Country: IT (occurrence: IT)
  Receive Date: 20240715
  Receipt Date: 20240715
  Transmission Date: 20241016
  Serious: Yes (Hospitalization, Other)
  Sender: HIKMA
  Company Number: IT-MLMSERVICE-20240613-PI080629-00232-2

PATIENT
  Age: 50 Year
  Sex: Male

DRUGS (14)
  1. TACROLIMUS [Suspect]
     Active Substance: TACROLIMUS
     Dosage: 10-12 NG/ML THEREAFTER
     Route: 048
  2. TACROLIMUS [Suspect]
     Active Substance: TACROLIMUS
     Indication: Immunosuppressant drug therapy
     Dosage: STANDARD-RELEASE, ADJUSTED TO ACHIEVE A TROUGH LEVEL OF 12-15 NG/ML DURING THE FIRST MONTH
     Route: 048
  3. ECULIZUMAB [Suspect]
     Active Substance: ECULIZUMAB
     Dosage: 900 MILLIGRAM, QD, D0
     Route: 042
  4. ECULIZUMAB [Suspect]
     Active Substance: ECULIZUMAB
     Indication: Product used for unknown indication
     Dosage: 900 MILLIGRAM, QD, ON DAY 18, ANOTHER SHOT
     Route: 042
  5. HUMAN IMMUNOGLOBULIN G [Suspect]
     Active Substance: HUMAN IMMUNOGLOBULIN G
     Dosage: 2 GRAM PER KILOGRAM, (BETWEEN DAY 5 AND 12)
     Route: 042
  6. HUMAN IMMUNOGLOBULIN G [Suspect]
     Active Substance: HUMAN IMMUNOGLOBULIN G
     Indication: Product used for unknown indication
     Dosage: 2 GRAM PER KILOGRAM, ON DAY 15, 16, AND 17
     Route: 042
  7. METHYLPREDNISOLONE [Suspect]
     Active Substance: METHYLPREDNISOLONE
     Indication: Immunosuppressant drug therapy
     Dosage: 500 MILLIGRAM, QD, D0-D2
     Route: 042
  8. METHYLPREDNISOLONE [Suspect]
     Active Substance: METHYLPREDNISOLONE
     Dosage: 500 MILLIGRAM, QD, D15-D18
     Route: 042
  9. MYCOPHENOLATE MOFETIL [Suspect]
     Active Substance: MYCOPHENOLATE MOFETIL
     Dosage: 1000 MILLIGRAM, QD; POST-OPERATIVE DAY 5, BETWEEN 1000 MG AND 2000 MG A DAY (TOTAL DOSE)
     Route: 048
  10. MYCOPHENOLATE MOFETIL [Suspect]
     Active Substance: MYCOPHENOLATE MOFETIL
     Indication: Immunosuppressant drug therapy
     Dosage: 2000 MILLIGRAM, QD; POST-OPERATIVE DAY 5, BETWEEN 1000 MG AND 2000 MG A DAY (TOTAL DOSE)
     Route: 048
  11. OBINUTUZUMAB [Suspect]
     Active Substance: OBINUTUZUMAB
     Indication: Transplant rejection
     Dosage: 1000 MILLIGRAM, QD, D21
     Route: 065
  12. PREDNISONE [Suspect]
     Active Substance: PREDNISONE
     Dosage: 20 MILLIGRAM, QD, D19-D30
     Route: 065
  13. PREDNISONE [Suspect]
     Active Substance: PREDNISONE
     Indication: Immunosuppressant drug therapy
     Dosage: 20 MILLIGRAM, QD, D3-D14
     Route: 065
  14. ANTI-THYMOCYTE GLOBULIN (RABBIT) NOS [Suspect]
     Active Substance: LAPINE T-LYMPHOCYTE IMMUNE GLOBULIN
     Indication: Immunosuppressant drug therapy
     Dosage: 5 MG/KG TOTAL DOSE D0-D4
     Route: 065

REACTIONS (2)
  - COVID-19 [Unknown]
  - Organising pneumonia [Unknown]
